FAERS Safety Report 10176534 (Version 2)
Quarter: 2014Q3

REPORT INFORMATION
  Report Type: Spontaneous
  Country: US (occurrence: US)
  Receive Date: 20140516
  Receipt Date: 20140908
  Transmission Date: 20150326
  Serious: No
  Sender: FDA-Public Use
  Company Number: US-GILEAD-2014-0102480

PATIENT
  Age: 61 Year
  Sex: Female

DRUGS (3)
  1. LETAIRIS [Suspect]
     Active Substance: AMBRISENTAN
     Indication: SLEEP APNOEA SYNDROME
  2. LETAIRIS [Suspect]
     Active Substance: AMBRISENTAN
     Indication: DIASTOLIC DYSFUNCTION
  3. LETAIRIS [Suspect]
     Active Substance: AMBRISENTAN
     Indication: PULMONARY ARTERIAL HYPERTENSION
     Dosage: 5 MG, QD
     Route: 065
     Dates: start: 20130321, end: 20140318

REACTIONS (1)
  - Oedema peripheral [Recovered/Resolved]

NARRATIVE: CASE EVENT DATE: 20140207
